FAERS Safety Report 8285434-X (Version None)
Quarter: 2012Q2

REPORT INFORMATION
  Report Type: 
  Country: None (occurrence: None)
  Receive Date: 20120413
  Receipt Date: 20111221
  Transmission Date: 20120825
  Serious: No
  Sender: FDA-Public Use
  Company Number: US-ASTRAZENECA-2011SE77008

PATIENT
  Age: 79 Year
  Sex: Male

DRUGS (3)
  1. ROLAIDS [Concomitant]
  2. NEXIUM [Suspect]
     Route: 048
  3. CALCIUM CARBONATE [Concomitant]

REACTIONS (4)
  - DYSPEPSIA [None]
  - APHAGIA [None]
  - INSOMNIA [None]
  - DRUG DOSE OMISSION [None]
